FAERS Safety Report 17471346 (Version 13)
Quarter: 2021Q1

REPORT INFORMATION
  Report Type: Spontaneous
  Country: US (occurrence: US)
  Receive Date: 20200227
  Receipt Date: 20210331
  Transmission Date: 20210419
  Serious: Yes (Hospitalization, Other)
  Sender: FDA-Public Use
  Company Number: US-AKCEA THERAPEUTICS-2020IS001082

PATIENT
  Age: 75 Year
  Sex: Male

DRUGS (2)
  1. ISSD (INTEGRATED SYRINGE SAFETY DEVICE) [Suspect]
     Active Substance: DEVICE
  2. TEGSEDI [Suspect]
     Active Substance: INOTERSEN SODIUM
     Indication: HEREDITARY NEUROPATHIC AMYLOIDOSIS
     Route: 058
     Dates: start: 20190805

REACTIONS (24)
  - Fall [Unknown]
  - Ankle fracture [Unknown]
  - Crystal urine present [Unknown]
  - Bacterial test positive [Not Recovered/Not Resolved]
  - Atrial fibrillation [Unknown]
  - Infection [Unknown]
  - Limb injury [Not Recovered/Not Resolved]
  - Fibula fracture [Not Recovered/Not Resolved]
  - Blood sodium decreased [Not Recovered/Not Resolved]
  - Protein urine present [Unknown]
  - Deep vein thrombosis [Not Recovered/Not Resolved]
  - Heart rate irregular [Not Recovered/Not Resolved]
  - Hyperhidrosis [Not Recovered/Not Resolved]
  - Urine protein/creatinine ratio increased [Unknown]
  - Urinary casts [Unknown]
  - Alanine aminotransferase abnormal [Not Recovered/Not Resolved]
  - Tibia fracture [Not Recovered/Not Resolved]
  - Fungal test positive [Not Recovered/Not Resolved]
  - Blood calcium decreased [Not Recovered/Not Resolved]
  - Nitrite urine present [Not Recovered/Not Resolved]
  - Poor venous access [Unknown]
  - Urine abnormality [Unknown]
  - Platelet count decreased [Unknown]
  - Blood urine present [Not Recovered/Not Resolved]

NARRATIVE: CASE EVENT DATE: 20200216
